FAERS Safety Report 20291935 (Version 1)
Quarter: 2022Q1

REPORT INFORMATION
  Report Type: Spontaneous
  Country: US (occurrence: US)
  Receive Date: 20220104
  Receipt Date: 20220104
  Transmission Date: 20220423
  Serious: No
  Sender: FDA-Public Use
  Company Number: US-PFIZER INC-202101454350

PATIENT
  Age: 73 Year
  Sex: Male

DRUGS (3)
  1. MORPHINE SULFATE [Suspect]
     Active Substance: MORPHINE SULFATE
     Dosage: UNK
  2. BENZONATATE [Concomitant]
     Active Substance: BENZONATATE
     Dosage: 1 DF, AS NEEDED, 1 CAPSULE ORALLY EVERY 8 HRS PRN
     Route: 048
  3. ZITHROMAX [Concomitant]
     Active Substance: AZITHROMYCIN DIHYDRATE
     Dosage: UNK, 1X/DAY, 2 TABLETS ON THE FIRST DAY, THEN 1 TABLET DAILY FOR 4 DAYS ORALLY ONCE A DAY.
     Route: 048

REACTIONS (4)
  - Drug hypersensitivity [Unknown]
  - Nausea [Unknown]
  - Vomiting [Unknown]
  - Hyperhidrosis [Unknown]
